FAERS Safety Report 8240601-6 (Version None)
Quarter: 2012Q1

REPORT INFORMATION
  Report Type: 
  Country: None (occurrence: None)
  Receive Date: 20120328
  Receipt Date: 20120313
  Transmission Date: 20120608
  Serious: Yes (Other)
  Sender: FDA-Public Use
  Company Number: US-ROCHE-1048822

PATIENT
  Sex: Female

DRUGS (2)
  1. CALCIUM CARBONATE [Concomitant]
  2. BONIVA [Suspect]
     Indication: PRODUCT USED FOR UNKNOWN INDICATION
     Route: 048
     Dates: start: 20120101, end: 20120201

REACTIONS (7)
  - PALPITATIONS [None]
  - CARDIAC DISORDER [None]
  - DYSPNOEA [None]
  - THROAT IRRITATION [None]
  - OESOPHAGEAL PAIN [None]
  - HEART RATE INCREASED [None]
  - NAUSEA [None]
